FAERS Safety Report 18568346 (Version 1)
Quarter: 2020Q4

REPORT INFORMATION
  Report Type: Spontaneous
  Country: CA (occurrence: CA)
  Receive Date: 20201202
  Receipt Date: 20201202
  Transmission Date: 20210114
  Serious: Yes (Hospitalization, Other)
  Sender: FDA-Public Use
  Company Number: CA-ROCHE-2721059

PATIENT
  Age: 44 Year
  Sex: Female

DRUGS (37)
  1. XOLAIR [Suspect]
     Active Substance: OMALIZUMAB
     Indication: ASTHMA
     Dosage: 1 DF, BIW
     Route: 058
     Dates: start: 20080905, end: 20090812
  2. XOLAIR [Suspect]
     Active Substance: OMALIZUMAB
     Dosage: 1 DF, BIW
     Route: 058
     Dates: start: 20180410
  3. XOLAIR [Suspect]
     Active Substance: OMALIZUMAB
     Dosage: 300 MG, BIW
     Route: 058
     Dates: start: 20190128
  4. XOLAIR [Suspect]
     Active Substance: OMALIZUMAB
     Dosage: 1 DF, BIW
     Route: 058
  5. RIZATRIPTAN BENZOATE. [Suspect]
     Active Substance: RIZATRIPTAN BENZOATE
     Indication: HYPOAESTHESIA
     Dosage: UNK (THIRD DOSE)
     Route: 065
     Dates: start: 20190704
  6. PREDNISONE. [Concomitant]
     Active Substance: PREDNISONE
     Indication: ASTHMA
     Dosage: 1 DF (5 MG), QD
     Route: 048
  7. XOLAIR [Suspect]
     Active Substance: OMALIZUMAB
     Dosage: 1 DF, BIW
     Route: 058
     Dates: start: 20180116
  8. XOLAIR [Suspect]
     Active Substance: OMALIZUMAB
     Dosage: 225 MG
     Route: 058
  9. SUMATRIPTAN. [Suspect]
     Active Substance: SUMATRIPTAN
     Indication: HYPOAESTHESIA
  10. PREDNISONE. [Concomitant]
     Active Substance: PREDNISONE
     Indication: LUNG DISORDER
     Route: 065
     Dates: start: 20171209
  11. XOLAIR [Suspect]
     Active Substance: OMALIZUMAB
     Dosage: 1 DF, BIW
     Route: 058
     Dates: start: 20190410
  12. ALMOTRIPTAN. [Suspect]
     Active Substance: ALMOTRIPTAN
     Indication: MIGRAINE
     Dosage: UNK
     Route: 065
     Dates: start: 20190717
  13. FROVA [Suspect]
     Active Substance: FROVATRIPTAN SUCCINATE
     Indication: MIGRAINE
     Dosage: 1 DF, Q12H (3 DOSES OVER 36 HOURS)
     Route: 065
  14. UNIPHYL [Concomitant]
     Active Substance: THEOPHYLLINE ANHYDROUS
     Indication: ASTHMA
     Dosage: 1 DF, QD
     Route: 048
  15. XOLAIR [Suspect]
     Active Substance: OMALIZUMAB
     Dosage: UNK
     Route: 058
     Dates: start: 20180131
  16. XOLAIR [Suspect]
     Active Substance: OMALIZUMAB
     Dosage: 1 DF, BIW
     Route: 058
     Dates: start: 20180605
  17. XOLAIR [Suspect]
     Active Substance: OMALIZUMAB
     Dosage: 1 DF, BIW
     Route: 058
     Dates: start: 20200108
  18. VENTOLIN [Concomitant]
     Active Substance: ALBUTEROL SULFATE
     Dosage: (4 TIMES A WEEK)
     Route: 065
  19. CLAVULIN [Concomitant]
     Active Substance: AMOXICILLIN\CLAVULANATE POTASSIUM
     Indication: SINUSITIS
  20. XOLAIR [Suspect]
     Active Substance: OMALIZUMAB
     Dosage: 1 DF, BIW
     Route: 058
     Dates: start: 20190508
  21. SUMATRIPTAN. [Suspect]
     Active Substance: SUMATRIPTAN
     Indication: MIGRAINE
     Dosage: UNK
     Route: 065
     Dates: start: 20190731
  22. ZENHALE [Concomitant]
     Active Substance: FORMOTEROL FUMARATE\MOMETASONE FUROATE
     Indication: ASTHMA
     Dosage: 4 DF, BID
     Route: 055
  23. XOLAIR [Suspect]
     Active Substance: OMALIZUMAB
     Dosage: UNK
     Route: 058
     Dates: start: 20180214
  24. XOLAIR [Suspect]
     Active Substance: OMALIZUMAB
     Dosage: 1 DF, BIW
     Route: 058
     Dates: start: 20190814
  25. XOLAIR [Suspect]
     Active Substance: OMALIZUMAB
     Dosage: 1 DF, BIW
     Route: 058
     Dates: start: 20200205
  26. ZOLMITRIPTAN. [Suspect]
     Active Substance: ZOLMITRIPTAN
     Indication: MIGRAINE
     Dosage: UNK
     Route: 065
     Dates: start: 20190814
  27. SPIRIVA [Concomitant]
     Active Substance: TIOTROPIUM BROMIDE MONOHYDRATE
     Indication: ASTHMA
     Dosage: 2 DF, QD
     Route: 055
  28. ZOLMITRIPTAN. [Suspect]
     Active Substance: ZOLMITRIPTAN
     Indication: HYPOAESTHESIA
  29. AMERGE [Suspect]
     Active Substance: NARATRIPTAN HYDROCHLORIDE
     Indication: MIGRAINE
     Dosage: UNK
     Route: 065
  30. VENTOLIN [Concomitant]
     Active Substance: ALBUTEROL SULFATE
     Indication: PRODUCT USED FOR UNKNOWN INDICATION
     Dosage: PRN
     Route: 065
  31. ASMANEX [Concomitant]
     Active Substance: MOMETASONE FUROATE
     Indication: ASTHMA
     Dosage: 1 DF, QD
     Route: 055
  32. CLAVULIN [Concomitant]
     Active Substance: AMOXICILLIN\CLAVULANATE POTASSIUM
     Indication: BRONCHITIS
     Dosage: UNK
     Route: 065
  33. CLAVULIN [Concomitant]
     Active Substance: AMOXICILLIN\CLAVULANATE POTASSIUM
     Indication: ASTHMA
  34. RIZATRIPTAN BENZOATE. [Suspect]
     Active Substance: RIZATRIPTAN BENZOATE
     Indication: MIGRAINE
     Dosage: UNK (DOSE BEFORE XOLAIR, ANOTHER DOSE 2 HOURS LATER)
     Route: 065
     Dates: start: 20190703
  35. ALMOTRIPTAN. [Suspect]
     Active Substance: ALMOTRIPTAN
     Indication: HYPOAESTHESIA
  36. SINGULAIR [Concomitant]
     Active Substance: MONTELUKAST SODIUM
     Indication: ASTHMA
     Dosage: 1 DF, QD
     Route: 048
  37. CLAVULIN [Concomitant]
     Active Substance: AMOXICILLIN\CLAVULANATE POTASSIUM
     Indication: PRODUCT USED FOR UNKNOWN INDICATION
     Dosage: UNK
     Route: 065

REACTIONS (55)
  - Asthenia [Unknown]
  - Insomnia [Unknown]
  - Feeling abnormal [Unknown]
  - Ear discomfort [Unknown]
  - Nasal oedema [Unknown]
  - Productive cough [Unknown]
  - Chest discomfort [Unknown]
  - Rhinorrhoea [Recovering/Resolving]
  - Tooth infection [Unknown]
  - Pneumonia [Unknown]
  - White blood cell count increased [Unknown]
  - Bronchial obstruction [Unknown]
  - Throat tightness [Unknown]
  - Diarrhoea [Unknown]
  - Sinusitis [Recovering/Resolving]
  - Pyrexia [Unknown]
  - Nervousness [Unknown]
  - Ear pain [Unknown]
  - Lung disorder [Unknown]
  - Hypoaesthesia [Recovering/Resolving]
  - Weight decreased [Unknown]
  - Fatigue [Unknown]
  - Injection site bruising [Recovering/Resolving]
  - Optic neuritis [Unknown]
  - Asthma [Recovering/Resolving]
  - Nasal congestion [Unknown]
  - Headache [Recovered/Resolved]
  - Respiratory tract infection [Unknown]
  - Hyperhidrosis [Unknown]
  - Pain [Recovered/Resolved]
  - Dust allergy [Unknown]
  - Vomiting [Unknown]
  - Injection site swelling [Recovered/Resolved]
  - Incorrect dose administered [Unknown]
  - Nausea [Unknown]
  - Temperature intolerance [Unknown]
  - Burns third degree [Unknown]
  - Wheezing [Unknown]
  - Somnolence [Unknown]
  - Mobility decreased [Recovered/Resolved]
  - Migraine [Unknown]
  - Flushing [Unknown]
  - Bronchitis [Recovering/Resolving]
  - Tinnitus [Unknown]
  - Seasonal allergy [Unknown]
  - Nasopharyngitis [Unknown]
  - Sputum discoloured [Unknown]
  - Cough [Unknown]
  - Vision blurred [Unknown]
  - Drug intolerance [Unknown]
  - Nasal discharge discolouration [Unknown]
  - Therapy partial responder [Unknown]
  - Dyspnoea [Unknown]
  - Malaise [Unknown]
  - Weight increased [Recovering/Resolving]

NARRATIVE: CASE EVENT DATE: 20161208
